FAERS Safety Report 18398009 (Version 2)
Quarter: 2020Q4

REPORT INFORMATION
  Report Type: Spontaneous
  Country: US (occurrence: US)
  Receive Date: 20201019
  Receipt Date: 20201126
  Transmission Date: 20210114
  Serious: Yes (Death, Hospitalization)
  Sender: FDA-Public Use
  Company Number: US-JNJFOC-20201023836

PATIENT
  Age: 68 Year
  Sex: Male
  Weight: 90.7 kg

DRUGS (15)
  1. ZYTIGA [Suspect]
     Active Substance: ABIRATERONE ACETATE
     Indication: PROSTATE CANCER
     Route: 048
     Dates: start: 20170922
  2. CASODEX [Concomitant]
     Active Substance: BICALUTAMIDE
     Route: 048
  3. LIPITOR [Concomitant]
     Active Substance: ATORVASTATIN CALCIUM
     Indication: HYPERCHOLESTEROLAEMIA
     Route: 048
     Dates: start: 20151203
  4. VIAGRA [Concomitant]
     Active Substance: SILDENAFIL CITRATE
     Indication: DISTURBANCE IN SEXUAL AROUSAL
     Route: 048
     Dates: start: 20161201
  5. TRAMADOL HCL [Concomitant]
     Active Substance: TRAMADOL HYDROCHLORIDE
     Indication: PROSTATE CANCER
     Route: 048
     Dates: start: 20171116
  6. ZOFRAN [Concomitant]
     Active Substance: ONDANSETRON HYDROCHLORIDE
     Indication: NAUSEA
     Route: 048
  7. PREDNISOLONE. [Concomitant]
     Active Substance: PREDNISOLONE
     Indication: PROSTATE CANCER
     Route: 048
     Dates: start: 20170922
  8. FLOMAX [Concomitant]
     Active Substance: TAMSULOSIN HYDROCHLORIDE
     Route: 048
  9. VITAMIN D3 [Concomitant]
     Active Substance: CHOLECALCIFEROL
     Route: 048
  10. MELATONIN [Concomitant]
     Active Substance: MELATONIN
     Route: 048
  11. ASPIRINE [Concomitant]
     Active Substance: ASPIRIN
     Route: 048
  12. ZOFRAN [Concomitant]
     Active Substance: ONDANSETRON HYDROCHLORIDE
     Indication: VOMITING
  13. CALCITRATE [Concomitant]
     Active Substance: CALCIUM CITRATE
     Route: 048
  14. LUPRON [Concomitant]
     Active Substance: LEUPROLIDE ACETATE
  15. CALCIUM + VITAMIN D [CALCIUM LACTATE;CALCIUM PHOSPHATE;COLECALCIFEROL] [Concomitant]
     Dosage: 250 - 100 MG
     Route: 048

REACTIONS (1)
  - Pneumonitis [Fatal]
